FAERS Safety Report 11539591 (Version 1)
Quarter: 2015Q3

REPORT INFORMATION
  Report Type: Spontaneous
  Country: US (occurrence: None)
  Receive Date: 20150922
  Receipt Date: 20150922
  Transmission Date: 20151125
  Serious: Yes (Other)
  Sender: FDA-Public Use
  Company Number: None

PATIENT
  Sex: Female

DRUGS (1)
  1. JADENU [Suspect]
     Active Substance: DEFERASIROX
     Indication: IRON METABOLISM DISORDER
     Dosage: 360MG  2 TABS QD ORAL
     Route: 048
     Dates: start: 20150812

REACTIONS (3)
  - Urine flow decreased [None]
  - Renal pain [None]
  - Abdominal pain [None]
